FAERS Safety Report 8560883-0 (Version None)
Quarter: 2012Q3

REPORT INFORMATION
  Report Type: 
  Country: None (occurrence: None)
  Receive Date: 20120727
  Receipt Date: 20120727
  Transmission Date: 20120928
  Serious: Yes (Hospitalization)
  Sender: FDA-Public Use
  Company Number: None

PATIENT
  Age: 91 Year
  Sex: Male
  Weight: 60 kg

DRUGS (5)
  1. TAMSULOSIN HCL [Concomitant]
  2. ASPIRIN [Suspect]
     Indication: CORONARY ARTERY DISEASE
     Dosage: 81MG DAILY PO CHRONIC
     Route: 048
  3. PLAVIX [Suspect]
     Indication: CORONARY ARTERY DISEASE
     Dosage: 75MG DAILY PO CHRONIC
     Route: 048
  4. LASIX [Concomitant]
  5. COSOPT [Concomitant]

REACTIONS (2)
  - GASTRITIS EROSIVE [None]
  - UPPER GASTROINTESTINAL HAEMORRHAGE [None]
